FAERS Safety Report 4514967-4 (Version None)
Quarter: 2004Q4

REPORT INFORMATION
  Report Type: 
  Country: None (occurrence: None)
  Receive Date: 20041129
  Receipt Date: 20041129
  Transmission Date: 20050328
  Serious: No
  Sender: FDA-Public Use
  Company Number: None

PATIENT
  Sex: Male
  Weight: 66.2252 kg

DRUGS (18)
  1. IRBESARTAN [Suspect]
     Indication: CARDIAC FAILURE CONGESTIVE
     Dosage: 37.5MG   QAM   ORAL
     Route: 048
     Dates: start: 20040513, end: 20041004
  2. IRBESARTAN [Suspect]
     Indication: HYPERTENSION
     Dosage: 37.5MG   QAM   ORAL
     Route: 048
     Dates: start: 20040513, end: 20041004
  3. ALBUTEROL SULFATE AND IPRATROPIUM BROMIDE [Concomitant]
  4. ALBUTEROL SO4 [Concomitant]
  5. ALLOPURINOL [Concomitant]
  6. BUSPIRONE HCL [Concomitant]
  7. CALCITRIOL [Concomitant]
  8. CLONIDINE HCL [Concomitant]
  9. CLOPIDOGREL BISULFATE [Concomitant]
  10. EPOETIN ALFA, RECOMB [Concomitant]
  11. FERROUS SO4 [Concomitant]
  12. FUROSEMIDE [Concomitant]
  13. HYDRALAZINE HCL [Concomitant]
  14. HYDROCODONE 5/ACETAMINOPHEN [Concomitant]
  15. ISOSORBIDE DINITRATE [Concomitant]
  16. SYNTHROID [Concomitant]
  17. LOVASTATIN [Concomitant]
  18. OMEPRAZOLE [Concomitant]

REACTIONS (1)
  - HYPERKALAEMIA [None]
